FAERS Safety Report 5506138-X (Version None)
Quarter: 2007Q4

REPORT INFORMATION
  Report Type: 
  Country: None (occurrence: None)
  Receive Date: 20071026
  Receipt Date: 20071026
  Transmission Date: 20080405
  Serious: No
  Sender: FDA-Public Use
  Company Number: None

PATIENT
  Age: 19 Year
  Sex: Female
  Weight: 48.2 kg

DRUGS (1)
  1. IRON DEXTRAN [Suspect]
     Indication: DRUG THERAPY
     Dosage: 25MG TEST DOSE X1 IV
     Route: 042
     Dates: start: 20071001

REACTIONS (2)
  - BACK PAIN [None]
  - DYSPNOEA [None]
